FAERS Safety Report 20518504 (Version 1)
Quarter: 2022Q1

REPORT INFORMATION
  Report Type: Spontaneous
  Country: US (occurrence: None)
  Receive Date: 20220224
  Receipt Date: 20220224
  Transmission Date: 20220423
  Serious: No
  Sender: FDA-Public Use
  Company Number: None

PATIENT
  Age: 58 Year
  Sex: Female

DRUGS (1)
  1. MAVYRET [Suspect]
     Active Substance: GLECAPREVIR\PIBRENTASVIR
     Dosage: OTHER QUANTITY : 1000-40MG X 3;?FREQUENCY : DAILY;?
     Route: 048
     Dates: start: 20220223

REACTIONS (4)
  - Insomnia [None]
  - Pruritus [None]
  - Eyelids pruritus [None]
  - Rash macular [None]

NARRATIVE: CASE EVENT DATE: 20220224
